FAERS Safety Report 7833514-2 (Version None)
Quarter: 2011Q4

REPORT INFORMATION
  Report Type: 
  Country: None (occurrence: None)
  Receive Date: 20111024
  Receipt Date: 20111011
  Transmission Date: 20120403
  Serious: Yes (Hospitalization)
  Sender: FDA-Public Use
  Company Number: US-BAYER-2011-015025

PATIENT
  Age: 28 Year
  Sex: Female
  Weight: 98 kg

DRUGS (2)
  1. YASMIN [Suspect]
     Indication: ACNE
     Dosage: UNK
     Dates: start: 20021201, end: 20031001
  2. YASMIN [Suspect]
     Indication: PREMENSTRUAL SYNDROME

REACTIONS (7)
  - INJURY [None]
  - DEEP VEIN THROMBOSIS [None]
  - SYNCOPE [None]
  - PAIN [None]
  - DIZZINESS [None]
  - DYSPNOEA [None]
  - PULMONARY EMBOLISM [None]
